FAERS Safety Report 5232875-0 (Version None)
Quarter: 2007Q1

REPORT INFORMATION
  Report Type: 
  Country: None (occurrence: None)
  Receive Date: 20070207
  Receipt Date: 20070130
  Transmission Date: 20070707
  Serious: Yes (Hospitalization)
  Sender: FDA-Public Use
  Company Number: JP-GILEAD-2007-0011151

PATIENT
  Age: 35 Year
  Sex: Female

DRUGS (9)
  1. AMBISOME [Suspect]
     Indication: CRYPTOCOCCOSIS
     Dates: start: 20060921, end: 20061002
  2. AMBISOME [Suspect]
     Route: 042
     Dates: start: 20060921, end: 20060921
  3. TRUVADA [Suspect]
     Route: 048
     Dates: start: 20060201
  4. BACTRIM [Concomitant]
     Route: 048
     Dates: start: 20051201
  5. ZITHROMAC [Concomitant]
     Route: 048
     Dates: start: 20060101
  6. DIFLUCAN [Concomitant]
     Dates: start: 20060109, end: 20060920
  7. DIFLUCAN [Concomitant]
     Dates: start: 20061003
  8. STOCRIN [Concomitant]
     Route: 048
     Dates: start: 20060201
  9. ANCOTIL [Concomitant]
     Route: 048
     Dates: start: 20060921, end: 20061002

REACTIONS (1)
  - BRAIN HERNIATION [None]
